FAERS Safety Report 25091187 (Version 1)
Quarter: 2025Q1

REPORT INFORMATION
  Report Type: Spontaneous
  Country: US (occurrence: US)
  Receive Date: 20250318
  Receipt Date: 20250318
  Transmission Date: 20250409
  Serious: Yes (Other)
  Sender: AMGEN
  Company Number: US-AMGEN-USASP2025049766

PATIENT
  Sex: Female

DRUGS (3)
  1. DENOSUMAB [Suspect]
     Active Substance: DENOSUMAB
     Indication: Metastases to bone
     Route: 065
  2. PEMBROLIZUMAB [Concomitant]
     Active Substance: PEMBROLIZUMAB
  3. METHYLPREDNISOLONE [Concomitant]
     Active Substance: METHYLPREDNISOLONE
     Dosage: 2 MILLIGRAM/KILOGRAM, QD
     Route: 065

REACTIONS (8)
  - Facial paralysis [Unknown]
  - Polyradiculoneuropathy [Unknown]
  - Asthenia [Unknown]
  - Myalgia [Unknown]
  - Muscular weakness [Recovered/Resolved]
  - Gait disturbance [Unknown]
  - Blood homocysteine increased [Unknown]
  - Amino acid level increased [Unknown]
